FAERS Safety Report 6276363-1 (Version None)
Quarter: 2009Q3

REPORT INFORMATION
  Report Type: 
  Country: None (occurrence: None)
  Receive Date: 20090722
  Receipt Date: 20090715
  Transmission Date: 20100115
  Serious: Yes (Hospitalization, Other)
  Sender: FDA-Public Use
  Company Number: PHMT2006CA01252

PATIENT
  Sex: Male

DRUGS (10)
  1. SANDOSTATIN LAR [Suspect]
     Indication: CARCINOID TUMOUR
     Dosage: 50 MG, ONCE A MONTH
     Dates: start: 20050202
  2. SANDOSTATIN LAR [Suspect]
     Dosage: 60 MG, EVERY 4 WEEKS
  3. SANDOSTATIN LAR [Suspect]
     Dosage: 30 MG EVERY 4 WEEKS
  4. FENTANYL CITRATE [Concomitant]
     Route: 062
  5. INDAPAMIDE [Concomitant]
  6. PRILOSEC [Concomitant]
  7. METOPROLOL SUCCINATE [Concomitant]
  8. NITROGLYCERIN [Concomitant]
     Route: 062
  9. REMERON [Concomitant]
  10. TIAZAC [Concomitant]

REACTIONS (18)
  - BALANCE DISORDER [None]
  - BRADYCARDIA [None]
  - CEREBROVASCULAR ACCIDENT [None]
  - CHEST PAIN [None]
  - DIARRHOEA [None]
  - DYSKINESIA [None]
  - DYSPNOEA [None]
  - ELECTROCARDIOGRAM AMBULATORY [None]
  - FLUSHING [None]
  - HEADACHE [None]
  - HEART RATE DECREASED [None]
  - HEART RATE IRREGULAR [None]
  - HEMIPARESIS [None]
  - NAUSEA [None]
  - PALPITATIONS [None]
  - SYNCOPE [None]
  - VOMITING [None]
  - WHEEZING [None]
